FAERS Safety Report 4990935-3 (Version None)
Quarter: 2006Q2

REPORT INFORMATION
  Report Type: 
  Country: None (occurrence: None)
  Receive Date: 20060428
  Receipt Date: 20060420
  Transmission Date: 20061013
  Serious: Yes (Other)
  Sender: FDA-Public Use
  Company Number: S06-USA-01529-01

PATIENT
  Age: 55 Year
  Sex: Female

DRUGS (3)
  1. LEXAPRO [Suspect]
  2. PEG-INTRON (PEGINTERFERON ALFA-2B) ( ( PEGINTERFERON ALFA-2B)) [Suspect]
     Indication: HEPATITIS C
     Dates: start: 20060306
  3. RIBAVIRIN [Suspect]
     Indication: HEPATITIS C
     Dates: start: 20060306

REACTIONS (10)
  - ANXIETY [None]
  - CONFUSIONAL STATE [None]
  - DEPRESSION [None]
  - DISTURBANCE IN ATTENTION [None]
  - HALLUCINATION [None]
  - HEPATIC PAIN [None]
  - INFLUENZA LIKE ILLNESS [None]
  - INSOMNIA [None]
  - LIVER DISORDER [None]
  - PSORIASIS [None]
